FAERS Safety Report 9914961 (Version 2)
Quarter: 2014Q1

REPORT INFORMATION
  Report Type: Spontaneous
  Country: US (occurrence: US)
  Receive Date: 20140220
  Receipt Date: 20140313
  Transmission Date: 20141002
  Serious: Yes (Other)
  Sender: FDA-Public Use
  Company Number: PHHY2014US019038

PATIENT
  Age: 77 Year
  Sex: Female

DRUGS (8)
  1. LEVOFLOXACIN [Suspect]
     Indication: DIVERTICULITIS
     Dosage: 500 MG, DAILY
     Route: 042
  2. METRONIDAZOLE [Concomitant]
     Indication: DIVERTICULITIS
     Dosage: 500 MG, DAILY
     Route: 042
  3. ALLOPURINOL [Concomitant]
  4. DILTIAZEM [Concomitant]
  5. FAMOTIDINE [Concomitant]
  6. FUROSEMIDE [Concomitant]
  7. LEVOTHYROXINE SODIUM [Concomitant]
  8. PAROXETINE [Concomitant]

REACTIONS (9)
  - Dyskinesia [Recovered/Resolved]
  - Muscle twitching [Recovered/Resolved]
  - Muscle spasms [Recovered/Resolved]
  - Grimacing [Recovered/Resolved]
  - Muscle contracture [Recovered/Resolved]
  - Dysarthria [Recovered/Resolved]
  - Facial spasm [Recovered/Resolved]
  - Confusional state [Unknown]
  - Disorientation [Unknown]
